FAERS Safety Report 21919405 (Version 1)
Quarter: 2023Q1

REPORT INFORMATION
  Report Type: Spontaneous
  Country: CN (occurrence: CN)
  Receive Date: 20230127
  Receipt Date: 20230127
  Transmission Date: 20230417
  Serious: Yes (Hospitalization, Other)
  Sender: FDA-Public Use
  Company Number: CN-SA-SAC20230124000272

PATIENT
  Age: 37 Year
  Sex: Male
  Weight: 70 kg

DRUGS (1)
  1. ZOLPIDEM TARTRATE [Suspect]
     Active Substance: ZOLPIDEM TARTRATE
     Indication: Sleep disorder
     Dosage: 110 MG QD
     Route: 048
     Dates: start: 20230105, end: 20230105

REACTIONS (6)
  - Loss of consciousness [Recovering/Resolving]
  - Alcohol poisoning [Recovering/Resolving]
  - Toxicity to various agents [Recovering/Resolving]
  - Nausea [Recovering/Resolving]
  - Vomiting [Recovering/Resolving]
  - Overdose [Recovering/Resolving]

NARRATIVE: CASE EVENT DATE: 20230105
